FAERS Safety Report 16606624 (Version 1)
Quarter: 2019Q3

REPORT INFORMATION
  Report Type: Spontaneous
  Country: TW (occurrence: TW)
  Receive Date: 20190722
  Receipt Date: 20190722
  Transmission Date: 20191004
  Serious: Yes (Hospitalization)
  Sender: FDA-Public Use
  Company Number: TW-ROCHE-2357467

PATIENT
  Age: 64 Year
  Sex: Female
  Weight: 53.8 kg

DRUGS (7)
  1. QUINAPRIL. [Concomitant]
     Active Substance: QUINAPRIL
     Indication: HYPERTENSION
     Route: 048
     Dates: start: 20171220
  2. PREDNISOLONE. [Concomitant]
     Active Substance: PREDNISOLONE
     Indication: RHEUMATOID ARTHRITIS
     Route: 048
     Dates: start: 20190320
  3. XYZAL [Concomitant]
     Active Substance: LEVOCETIRIZINE DIHYDROCHLORIDE
     Indication: PROPHYLAXIS
     Route: 048
     Dates: start: 20190123
  4. ACTEMRA [Suspect]
     Active Substance: TOCILIZUMAB
     Indication: RHEUMATOID ARTHRITIS
     Dosage: MOST RECENT DOSE ON 17/APR/2019.
     Route: 041
     Dates: start: 20140903
  5. VETERIN [Concomitant]
     Indication: SPONDYLOLISTHESIS
     Route: 042
     Dates: start: 20190601, end: 20190608
  6. PANTOPRAZOLE [Concomitant]
     Active Substance: PANTOPRAZOLE
     Indication: SPONDYLOLISTHESIS
     Dosage: 1 VIAL
     Route: 042
     Dates: start: 20190601, end: 20190603
  7. MORPHINE [Concomitant]
     Active Substance: MORPHINE
     Indication: SPONDYLOLISTHESIS
     Dosage: PRN
     Route: 058
     Dates: start: 20190601, end: 20190606

REACTIONS (2)
  - Spondylolisthesis [Recovered/Resolved]
  - Lumbar vertebral fracture [Recovered/Resolved]

NARRATIVE: CASE EVENT DATE: 20190531
